FAERS Safety Report 8587341-1 (Version None)
Quarter: 2012Q3

REPORT INFORMATION
  Report Type: 
  Country: None (occurrence: None)
  Receive Date: 20120810
  Receipt Date: 20120328
  Transmission Date: 20120928
  Serious: No
  Sender: FDA-Public Use
  Company Number: US-ASTRAZENECA-2012SE20749

PATIENT
  Sex: Female

DRUGS (6)
  1. ARIMIDEX [Suspect]
     Indication: BREAST CANCER
     Route: 048
  2. PRILOSEC [Concomitant]
  3. EFFEXOR [Concomitant]
  4. MORPHINE [Concomitant]
  5. NIFEDIPINE [Concomitant]
  6. MOBIC [Concomitant]

REACTIONS (7)
  - MALAISE [None]
  - VOMITING [None]
  - HEADACHE [None]
  - PAIN [None]
  - HYPERTENSION [None]
  - HYPERHIDROSIS [None]
  - NAUSEA [None]
